FAERS Safety Report 15259308 (Version 3)
Quarter: 2018Q3

REPORT INFORMATION
  Report Type: Report from Study
  Country: US (occurrence: US)
  Receive Date: 20180809
  Receipt Date: 20180919
  Transmission Date: 20181010
  Serious: Yes (Hospitalization, Other)
  Sender: FDA-Public Use
  Company Number: US-JNJFOC-20180627042

PATIENT
  Age: 66 Year
  Sex: Male

DRUGS (18)
  1. SIMVASTATIN. [Concomitant]
     Active Substance: SIMVASTATIN
  2. ALKA?SELTZER [Concomitant]
     Active Substance: ANHYDROUS CITRIC ACID\ASPIRIN\SODIUM BICARBONATE
  3. NOVOLOG [Concomitant]
     Active Substance: INSULIN ASPART
  4. METFORMIN [Concomitant]
     Active Substance: METFORMIN HYDROCHLORIDE
  5. ASPIR LOW [Concomitant]
     Active Substance: ASPIRIN
  6. IMBRUVICA [Suspect]
     Active Substance: IBRUTINIB
     Indication: CHRONIC LYMPHOCYTIC LEUKAEMIA
     Dosage: 420 MG, QD
     Route: 048
     Dates: start: 20180615, end: 20180905
  7. IMBRUVICA [Suspect]
     Active Substance: IBRUTINIB
     Indication: CHRONIC LYMPHOCYTIC LEUKAEMIA
     Dosage: 280 MG, QD
     Route: 048
     Dates: start: 20180906
  8. BENAZEPRIL HCL [Concomitant]
     Active Substance: BENAZEPRIL HYDROCHLORIDE
  9. POTASSIUM CHLORIDE. [Concomitant]
     Active Substance: POTASSIUM CHLORIDE
  10. FISH OIL [Concomitant]
     Active Substance: FISH OIL
  11. METOPROLOL. [Concomitant]
     Active Substance: METOPROLOL
  12. TUMS [Concomitant]
     Active Substance: CALCIUM CARBONATE
  13. LANTUS [Concomitant]
     Active Substance: INSULIN GLARGINE
  14. ONDANSETRON [Concomitant]
     Active Substance: ONDANSETRON
  15. ELIQUIS [Suspect]
     Active Substance: APIXABAN
     Indication: PRODUCT USED FOR UNKNOWN INDICATION
     Route: 065
  16. DIGOXIN. [Concomitant]
     Active Substance: DIGOXIN
  17. BUMETANIDE. [Concomitant]
     Active Substance: BUMETANIDE
  18. COMPAZINE [Concomitant]
     Active Substance: PROCHLORPERAZINE MALEATE

REACTIONS (18)
  - Headache [Unknown]
  - Vomiting [Not Recovered/Not Resolved]
  - Lipoma [Unknown]
  - Nausea [Not Recovered/Not Resolved]
  - Decreased appetite [Unknown]
  - Disease progression [Unknown]
  - Rash [Unknown]
  - Post procedural haemorrhage [Not Recovered/Not Resolved]
  - Incorrect dose administered [Unknown]
  - Dyspepsia [Unknown]
  - Vertigo [Unknown]
  - Neck pain [Unknown]
  - Abdominal discomfort [Unknown]
  - Weight decreased [Unknown]
  - Cardiac failure congestive [Unknown]
  - Diarrhoea [Recovering/Resolving]
  - Off label use [Unknown]
  - Fatigue [Recovered/Resolved]

NARRATIVE: CASE EVENT DATE: 20180617
